FAERS Safety Report 21207271 (Version 1)
Quarter: 2022Q3

REPORT INFORMATION
  Report Type: Spontaneous
  Country: AT (occurrence: AT)
  Receive Date: 20220812
  Receipt Date: 20220812
  Transmission Date: 20221027
  Serious: Yes (Other)
  Sender: FDA-Public Use
  Company Number: None

PATIENT
  Age: 48 Year
  Sex: Male

DRUGS (1)
  1. DOXYCYCLINE [Suspect]
     Active Substance: DOXYCYCLINE
     Indication: Product used for unknown indication
     Dosage: DOXYBENE 200MG- SOLUBLE TABLETS
     Route: 065
     Dates: start: 20220621, end: 20220621

REACTIONS (2)
  - Type IV hypersensitivity reaction [Unknown]
  - Drug eruption [Unknown]

NARRATIVE: CASE EVENT DATE: 20220621
